FAERS Safety Report 8089312-0 (Version None)
Quarter: 2012Q1

REPORT INFORMATION
  Report Type: 
  Country: None (occurrence: None)
  Receive Date: 20120128
  Receipt Date: 20110628
  Transmission Date: 20120608
  Serious: Yes (Other)
  Sender: FDA-Public Use
  Company Number: US-ABBOTT-11P-163-0835565-00

PATIENT
  Age: 56 Year
  Sex: Female

DRUGS (8)
  1. IRON INFUSIONS [Concomitant]
     Indication: PRODUCT USED FOR UNKNOWN INDICATION
     Dosage: WEEKLY
  2. HUMIRA [Suspect]
     Indication: CROHN'S DISEASE
     Route: 058
     Dates: start: 20090601, end: 20100601
  3. SIMVASTATIN [Concomitant]
     Indication: BLOOD CHOLESTEROL INCREASED
     Dosage: DAILY
  4. SPIRIVA [Concomitant]
     Indication: CHRONIC OBSTRUCTIVE PULMONARY DISEASE
  5. GABAPENTIN [Concomitant]
     Indication: NEURALGIA
     Dosage: DAILY
  6. HUMIRA [Suspect]
     Route: 058
     Dates: start: 20100601
  7. RANITIDINE [Concomitant]
     Indication: GASTRIC DISORDER
     Dosage: DAILY
  8. MERCAPTOPURINE [Concomitant]
     Indication: CROHN'S DISEASE
     Dosage: DAILY

REACTIONS (3)
  - DRUG INEFFECTIVE [None]
  - IMPAIRED HEALING [None]
  - ESCHERICHIA INFECTION [None]
